FAERS Safety Report 16113123 (Version 11)
Quarter: 2021Q3

REPORT INFORMATION
  Report Type: Spontaneous
  Country: US (occurrence: US)
  Receive Date: 20190325
  Receipt Date: 20210702
  Transmission Date: 20211014
  Serious: Yes (Other)
  Sender: FDA-Public Use
  Company Number: US-PFIZER INC-2019124337

PATIENT
  Age: 61 Year
  Sex: Female
  Weight: 63 kg

DRUGS (2)
  1. LYRICA [Suspect]
     Active Substance: PREGABALIN
     Indication: FIBROMYALGIA
     Dosage: 225 MG, UNK
  2. LYRICA [Suspect]
     Active Substance: PREGABALIN
     Indication: MULTIPLE SCLEROSIS
     Dosage: 75 MG, 2X/DAY (1 CAPSULE IN MORNING AND EVENING)
     Route: 048

REACTIONS (17)
  - Speech disorder [Unknown]
  - Panic attack [Unknown]
  - Intentional product misuse [Unknown]
  - Myalgia [Unknown]
  - Migraine [Unknown]
  - Autoimmune disorder [Not Recovered/Not Resolved]
  - Condition aggravated [Not Recovered/Not Resolved]
  - Feeling abnormal [Unknown]
  - Mental disorder [Unknown]
  - Product dose omission issue [Unknown]
  - Myocardial infarction [Unknown]
  - Illness [Unknown]
  - Urinary tract infection [Unknown]
  - Drug ineffective [Unknown]
  - Respiratory disorder [Unknown]
  - Influenza [Unknown]
  - Cystitis [Unknown]
